FAERS Safety Report 5946820-3 (Version None)
Quarter: 2008Q4

REPORT INFORMATION
  Report Type: 
  Country: None (occurrence: None)
  Receive Date: 20081107
  Receipt Date: 20081107
  Transmission Date: 20090506
  Serious: Yes (Life-Threatening, Hospitalization, Disabling, Other)
  Sender: FDA-Public Use
  Company Number: None

PATIENT
  Age: 49 Year
  Sex: Male
  Weight: 99.7913 kg

DRUGS (1)
  1. LEVAQUIN [Suspect]
     Indication: BRONCHITIS
     Dosage: 500MG 1/DAY PO
     Route: 048
     Dates: start: 20081101, end: 20081105

REACTIONS (6)
  - ASTHENIA [None]
  - HEADACHE [None]
  - OEDEMA MOUTH [None]
  - PAIN [None]
  - SWOLLEN TONGUE [None]
  - TENDON DISORDER [None]
